FAERS Safety Report 5270530-1 (Version None)
Quarter: 2007Q1

REPORT INFORMATION
  Report Type: 
  Country: None (occurrence: None)
  Receive Date: 20070315
  Receipt Date: 20070302
  Transmission Date: 20070707
  Serious: Yes (Other)
  Sender: FDA-Public Use
  Company Number: 2007BI005357

PATIENT
  Sex: Female

DRUGS (2)
  1. AVONEX [Suspect]
     Dosage: IM
     Route: 030
     Dates: start: 20040101, end: 20050101
  2. AVONEX [Suspect]
     Dosage: IM
     Route: 030
     Dates: start: 20051001

REACTIONS (2)
  - DRUG EXPOSURE DURING PREGNANCY [None]
  - PREMATURE LABOUR [None]
